FAERS Safety Report 8534186-4 (Version None)
Quarter: 2012Q3

REPORT INFORMATION
  Report Type: 
  Country: None (occurrence: None)
  Receive Date: 20120724
  Receipt Date: 20120716
  Transmission Date: 20120928
  Serious: Yes (Life-Threatening, Hospitalization, Other)
  Sender: FDA-Public Use
  Company Number: US-ACTELION-A-US2011-45969

PATIENT

DRUGS (4)
  1. LOVENOX [Concomitant]
  2. TRACLEER [Suspect]
     Indication: PULMONARY ARTERIAL HYPERTENSION
     Dosage: UNK
     Route: 048
     Dates: start: 20040105
  3. ADCIRCA [Concomitant]
  4. DIGOXIN [Concomitant]

REACTIONS (10)
  - ROAD TRAFFIC ACCIDENT [None]
  - DYSPHONIA [None]
  - ENDOTRACHEAL INTUBATION COMPLICATION [None]
  - CARDIAC FAILURE [None]
  - MEDICAL INDUCTION OF COMA [None]
  - CHEST PAIN [None]
  - PARAESTHESIA [None]
  - LIMB CRUSHING INJURY [None]
  - MYOCARDIAL INFARCTION [None]
  - VOCAL CORD DISORDER [None]
